FAERS Safety Report 23056133 (Version 1)
Quarter: 2023Q4

REPORT INFORMATION
  Report Type: Spontaneous
  Country: CA (occurrence: CA)
  Receive Date: 20231011
  Receipt Date: 20231011
  Transmission Date: 20240110
  Serious: Yes (Hospitalization)
  Sender: FDA-Public Use
  Company Number: CA-GLAXOSMITHKLINE-CA2023AMR134938

PATIENT

DRUGS (2)
  1. BENLYSTA [Suspect]
     Active Substance: BELIMUMAB
     Indication: Systemic lupus erythematosus
     Dosage: UNK
  2. AZATHIOPRINE [Concomitant]
     Active Substance: AZATHIOPRINE
     Indication: Product used for unknown indication
     Dosage: UNK
     Dates: start: 20200909, end: 20220801

REACTIONS (5)
  - COVID-19 [Recovered/Resolved]
  - Pyrexia [Unknown]
  - Cough [Unknown]
  - Pharyngitis [Unknown]
  - Rhinitis [Unknown]

NARRATIVE: CASE EVENT DATE: 20230512
